FAERS Safety Report 7225906-X (Version None)
Quarter: 2011Q1

REPORT INFORMATION
  Report Type: 
  Country: None (occurrence: None)
  Receive Date: 20110113
  Receipt Date: 20110107
  Transmission Date: 20110831
  Serious: Yes (Other)
  Sender: FDA-Public Use
  Company Number: US-AMGEN-USASP2011001000

PATIENT

DRUGS (3)
  1. ADVAIR HFA [Concomitant]
  2. PROAIR HFA [Concomitant]
  3. PROLIA [Suspect]
     Indication: OSTEOPOROSIS POSTMENOPAUSAL
     Dates: start: 20101230

REACTIONS (6)
  - HOT FLUSH [None]
  - OROPHARYNGEAL PAIN [None]
  - NAUSEA [None]
  - FEELING HOT [None]
  - SLEEP DISORDER [None]
  - DYSPEPSIA [None]
